FAERS Safety Report 18367256 (Version 2)
Quarter: 2025Q2

REPORT INFORMATION
  Report Type: Spontaneous
  Country: FR (occurrence: FR)
  Receive Date: 20201009
  Receipt Date: 20250424
  Transmission Date: 20250717
  Serious: Yes (Hospitalization)
  Sender: PFIZER
  Company Number: None

PATIENT
  Age: 58 Year
  Sex: Male
  Weight: 100 kg

DRUGS (4)
  1. IBUPROFEN [Suspect]
     Active Substance: IBUPROFEN
     Indication: Parotitis
     Dates: start: 20191115, end: 20191116
  2. CLINDAMYCIN [Suspect]
     Active Substance: CLINDAMYCIN
     Indication: Parotitis
     Dates: start: 20191119, end: 20191120
  3. PRISTINAMYCIN [Suspect]
     Active Substance: PRISTINAMYCIN
     Indication: Parotitis
     Route: 048
     Dates: start: 20191115, end: 20191116
  4. AZTREONAM [Suspect]
     Active Substance: AZTREONAM
     Indication: Parotitis
     Dates: start: 20191119, end: 20191120

REACTIONS (3)
  - Eosinophilia [Recovered/Resolved]
  - Erythema multiforme [Recovered/Resolved]
  - Pyrexia [Recovered/Resolved]

NARRATIVE: CASE EVENT DATE: 20191116
